FAERS Safety Report 5353889-6 (Version None)
Quarter: 2007Q2

REPORT INFORMATION
  Report Type: 
  Country: None (occurrence: None)
  Receive Date: 20070518
  Receipt Date: 20070409
  Transmission Date: 20071010
  Serious: No
  Sender: FDA-Public Use
  Company Number: TPA2006A01130

PATIENT
  Sex: Male

DRUGS (3)
  1. ROZEREM [Suspect]
     Dosage: PER ORAL
     Route: 048
  2. BENZODIAZEPINES (BENZODIAZEPINE DERIVATIVES) [Suspect]
  3. ABILIFY [Concomitant]

REACTIONS (1)
  - DRUG SCREEN POSITIVE [None]
